FAERS Safety Report 16339968 (Version 1)
Quarter: 2019Q2

REPORT INFORMATION
  Report Type: Spontaneous
  Country: ES (occurrence: ES)
  Receive Date: 20190521
  Receipt Date: 20190521
  Transmission Date: 20190711
  Serious: Yes (Hospitalization)
  Sender: FDA-Public Use
  Company Number: ES-TEVA-2019-ES-1051192

PATIENT
  Age: 83 Year
  Sex: Female

DRUGS (4)
  1. ESCITALOPRAM [Suspect]
     Active Substance: ESCITALOPRAM OXALATE
     Dosage: 10 MILLIGRAM DAILY;
     Route: 048
     Dates: start: 20150427
  2. TORASEMIDA (2351A) [Interacting]
     Active Substance: TORSEMIDE
     Indication: OEDEMA PERIPHERAL
     Dosage: 5 MILLIGRAM DAILY;
     Route: 048
     Dates: start: 20131107, end: 20190107
  3. TORASEMIDA (2351A) [Interacting]
     Active Substance: TORSEMIDE
     Dosage: 10 MG A DAY .
     Route: 048
     Dates: start: 20190108, end: 20190113
  4. ALDACTONE [Interacting]
     Active Substance: SPIRONOLACTONE
     Indication: AORTIC STENOSIS
     Dosage: 25 MILLIGRAM DAILY; 1-0-0
     Route: 048
     Dates: start: 20180101

REACTIONS (2)
  - Inappropriate antidiuretic hormone secretion [Recovering/Resolving]
  - Drug interaction [Unknown]

NARRATIVE: CASE EVENT DATE: 20190113
